FAERS Safety Report 8714601 (Version 2)
Quarter: 2012Q4

REPORT INFORMATION
  Report Type: 
  Country: US (occurrence: US)
  Receive Date: 20120809
  Receipt Date: 20121127
  Transmission Date: 20130627
  Serious: Yes (Hospitalization)
  Sender: FDA-Public Use
  Company Number: US-BAYER-2012-077885

PATIENT
  Age: 22 Year
  Sex: Female
  Weight: 142.86 kg

DRUGS (7)
  1. YAZ [Suspect]
     Indication: CONTRACEPTION
     Dosage: UNK
     Dates: start: 200811, end: 200903
  2. YAZ [Suspect]
     Indication: MENSTRUAL IRREGULARITY
  3. YASMIN [Suspect]
  4. OCELLA [Suspect]
     Indication: CONTRACEPTION
     Dosage: UNK
     Dates: start: 200904, end: 201010
  5. OCELLA [Suspect]
     Indication: MENSTRUAL IRREGULARITY
  6. METFORMIN [Concomitant]
  7. PROMETHAZINE [Concomitant]

REACTIONS (10)
  - Gallbladder disorder [None]
  - Biliary dyskinesia [None]
  - Abdominal pain [None]
  - Injury [None]
  - General physical health deterioration [None]
  - Anxiety [None]
  - Emotional distress [None]
  - Anhedonia [None]
  - Pain [None]
  - Pain [None]
